FAERS Safety Report 5130715-1 (Version None)
Quarter: 2006Q4

REPORT INFORMATION
  Report Type: 
  Country: None (occurrence: None)
  Receive Date: 20061018
  Receipt Date: 20061018
  Transmission Date: 20070319
  Serious: Yes (Life-Threatening, Hospitalization)
  Sender: FDA-Public Use
  Company Number: None

PATIENT
  Age: 79 Year
  Sex: Female
  Weight: 75 kg

DRUGS (11)
  1. MAXZIDE-25 [Suspect]
     Indication: HYPERTENSION
     Dosage: 1 TAB DAILY
     Route: 065
  2. PLAVIX [Concomitant]
  3. AMBIEN [Concomitant]
  4. METOPROLOL [Concomitant]
  5. VICODIN [Concomitant]
  6. VESICARE [Concomitant]
  7. ZOCOR [Concomitant]
  8. XANAX [Concomitant]
  9. MAXALT [Concomitant]
  10. COUMADIN [Concomitant]
  11. LOMOTIL [Concomitant]

REACTIONS (6)
  - BLOOD SODIUM DECREASED [None]
  - CHEST PAIN [None]
  - FALL [None]
  - HALLUCINATION [None]
  - MENTAL STATUS CHANGES [None]
  - RIB FRACTURE [None]
